FAERS Safety Report 6827971-8 (Version None)
Quarter: 2010Q3

REPORT INFORMATION
  Report Type: 
  Country: None (occurrence: None)
  Receive Date: 20100709
  Receipt Date: 20100701
  Transmission Date: 20110219
  Serious: Yes (Hospitalization)
  Sender: FDA-Public Use
  Company Number: A0869089A

PATIENT
  Sex: Male

DRUGS (1)
  1. AVANDIA [Suspect]
     Dosage: 8MG PER DAY
     Route: 048
     Dates: start: 20040301, end: 20080801

REACTIONS (4)
  - BLINDNESS [None]
  - CARDIAC DISORDER [None]
  - LIVER DISORDER [None]
  - MACULAR OEDEMA [None]
